FAERS Safety Report 7573219-9 (Version None)
Quarter: 2011Q2

REPORT INFORMATION
  Report Type: 
  Country: None (occurrence: None)
  Receive Date: 20110525
  Receipt Date: 20110128
  Transmission Date: 20111010
  Serious: Yes (Hospitalization)
  Sender: FDA-Public Use
  Company Number: 315119

PATIENT
  Age: 78 Year
  Sex: Male
  Weight: 90.2 kg

DRUGS (8)
  1. NPH INSULIN [Concomitant]
  2. VICTOZA [Suspect]
  3. QVAR [Concomitant]
  4. VICTOZA [Suspect]
     Indication: TYPE 2 DIABETES MELLITUS
     Dosage: SUBCUTANEOUS, 1.2 MG, QD, SUBCUTANEOUS, SUBCUTANEOUS
     Route: 058
     Dates: start: 20100701, end: 20100801
  5. IPRATROPIUM BROMIDE [Concomitant]
  6. SYMBICORT (BUDESONIDE, FORMOTEROL FUMURATE) [Concomitant]
  7. VICTOZA [Suspect]
  8. PROVENTIL [Concomitant]

REACTIONS (1)
  - PANCREATITIS [None]
